FAERS Safety Report 9492454 (Version 2)
Quarter: 2014Q2

REPORT INFORMATION
  Report Type: Spontaneous
  Country: US (occurrence: US)
  Receive Date: 20130830
  Receipt Date: 20140409
  Transmission Date: 20141212
  Serious: Yes (Hospitalization)
  Sender: FDA-Public Use
  Company Number: US-B.I. PHARMACEUTICALS,INC./RIDGEFIELD-2013-BI-26704BP

PATIENT
  Age: 73 Year
  Sex: Male
  Weight: 90.72 kg

DRUGS (6)
  1. PRADAXA [Suspect]
     Indication: ANTICOAGULANT THERAPY
     Dosage: 300 MG
     Route: 065
     Dates: start: 20120816, end: 20120904
  2. PRADAXA [Suspect]
     Indication: ATRIAL FIBRILLATION
  3. LASIX [Concomitant]
     Dosage: 20 MG
     Route: 048
     Dates: end: 201209
  4. LOSARTAN [Concomitant]
     Dosage: 50 MG
     Route: 048
     Dates: end: 2012
  5. ASPIRIN [Concomitant]
     Dosage: 81 MG
     Route: 048
     Dates: end: 201209
  6. LOPRESSOR [Concomitant]
     Dosage: 50 MG
     Route: 065

REACTIONS (2)
  - Upper gastrointestinal haemorrhage [Unknown]
  - Haemorrhagic anaemia [Unknown]
